FAERS Safety Report 6054770-X (Version None)
Quarter: 2009Q1

REPORT INFORMATION
  Report Type: 
  Country: None (occurrence: None)
  Receive Date: 20090128
  Receipt Date: 20090116
  Transmission Date: 20090719
  Serious: Yes (Hospitalization, Disabling, Other)
  Sender: FDA-Public Use
  Company Number: SE-PFIZER INC-2008073038

PATIENT

DRUGS (2)
  1. SALAZOPYRIN [Suspect]
     Dates: start: 20070201, end: 20070601
  2. VOLTAREN [Concomitant]
     Dosage: UNK
     Dates: end: 20070101

REACTIONS (6)
  - AMYOTROPHIC LATERAL SCLEROSIS [None]
  - DEPRESSION [None]
  - DYSARTHRIA [None]
  - ENCEPHALOPATHY [None]
  - NERVOUS SYSTEM DISORDER [None]
  - PARAPARESIS [None]
